FAERS Safety Report 23032248 (Version 1)
Quarter: 2023Q4

REPORT INFORMATION
  Report Type: Spontaneous
  Country: US (occurrence: None)
  Receive Date: 20231004
  Receipt Date: 20231004
  Transmission Date: 20240110
  Serious: No
  Sender: FDA-Public Use
  Company Number: None

PATIENT
  Age: 82 Year
  Sex: Female
  Weight: 75.3 kg

DRUGS (2)
  1. COSENTYX [Suspect]
     Active Substance: SECUKINUMAB
     Indication: Psoriasis
     Dosage: OTHER FREQUENCY : WK1,2,3/T/ASDIR;?
     Route: 058
     Dates: start: 202309
  2. COSENTYX [Suspect]
     Active Substance: SECUKINUMAB
     Indication: Senile osteoporosis

REACTIONS (1)
  - Nasopharyngitis [None]
